FAERS Safety Report 9688332 (Version 2)
Quarter: 2013Q4

REPORT INFORMATION
  Report Type: Spontaneous
  Country: BR (occurrence: BR)
  Receive Date: 20131114
  Receipt Date: 20131211
  Transmission Date: 20140711
  Serious: Yes (Hospitalization, Other)
  Sender: FDA-Public Use
  Company Number: PHHY2013BR129942

PATIENT
  Age: 91 Year
  Sex: Female

DRUGS (7)
  1. DIOVAN [Suspect]
     Indication: HYPERTENSION
     Dosage: 320 MG, DAILY
  2. DIOVAN [Suspect]
     Dosage: 1 DF (160 MG), BID (IN THE MORNING AND IN THE AFTERNOON)
     Route: 048
  3. DIOVAN [Suspect]
     Dosage: 80 MG, UNK
  4. ALENDRONATE SODIUM [Suspect]
     Indication: OSTEOPOROSIS
     Dosage: 70 MG, WEEKLY
  5. PRESSAT [Suspect]
     Indication: HYPERTENSION
     Dosage: 1 DF (2.5MG), DAILY
  6. STILNOX [Suspect]
     Indication: SLEEP DISORDER
     Dosage: 1 DF, QD AT NIGHT
     Dates: start: 20131004
  7. ATLANSIL//AMIODARONE [Suspect]
     Indication: ARRHYTHMIA
     Dosage: 1 DF (100MG), DAILY

REACTIONS (9)
  - Cerebral ischaemia [Recovered/Resolved with Sequelae]
  - Speech disorder [Recovering/Resolving]
  - Asthenia [Recovering/Resolving]
  - Bradyphrenia [Recovering/Resolving]
  - Cerebrovascular accident [Recovering/Resolving]
  - Arrhythmia [Unknown]
  - Depressed mood [Unknown]
  - Blood pressure decreased [Recovering/Resolving]
  - Headache [Recovering/Resolving]
